FAERS Safety Report 9198966 (Version 2)
Quarter: 2013Q2

REPORT INFORMATION
  Report Type: Spontaneous
  Country: US (occurrence: None)
  Receive Date: 20130325
  Receipt Date: 20130409
  Transmission Date: 20140414
  Serious: No
  Sender: FDA-Public Use
  Company Number: 2013US-004575

PATIENT
  Age: 74 Year
  Sex: Male
  Weight: 88 kg

DRUGS (8)
  1. OMONTYS (PEGINESATIDE) SOLUTION FOR INJECTION [Suspect]
     Indication: NEPHROGENIC ANAEMIA
     Route: 042
     Dates: start: 20130208, end: 20130208
  2. ZEMPLAR (PARICALCITOL) [Concomitant]
  3. VENOFER [Concomitant]
  4. HEPARIN SODIUM (HEPARIN SODIUM) [Concomitant]
  5. ASPIRIN (ACETYLSALICYLIC ACID) [Concomitant]
  6. PHOSLO (CALCIUM ACETATE) [Concomitant]
  7. VISTARIL (HYDROXYZINE HYDROCHLORIDE) [Concomitant]
  8. EPOGEN (EPOETIN ALFA) [Concomitant]

REACTIONS (7)
  - Dyspnoea [None]
  - Hypotension [None]
  - Hypersensitivity [None]
  - Feeling hot [None]
  - Heart rate increased [None]
  - Blood pressure systolic increased [None]
  - Refusal of treatment by patient [None]
